FAERS Safety Report 5707945-0 (Version None)
Quarter: 2008Q2

REPORT INFORMATION
  Report Type: 
  Country: None (occurrence: None)
  Receive Date: 20080417
  Receipt Date: 20080408
  Transmission Date: 20081010
  Serious: Yes (Other)
  Sender: FDA-Public Use
  Company Number: PHEH2008US03292

PATIENT
  Sex: Male
  Weight: 113.38 kg

DRUGS (3)
  1. ZOMETA [Suspect]
     Dates: start: 20070501
  2. REVLIMID [Concomitant]
     Dates: start: 20070501
  3. DEXAMETHASONE TAB [Concomitant]
     Dates: start: 20070501

REACTIONS (3)
  - HYPERGLYCAEMIA [None]
  - MONOCLONAL IMMUNOGLOBULIN PRESENT [None]
  - OSTEONECROSIS [None]
